FAERS Safety Report 9359828 (Version 1)
Quarter: 2013Q2

REPORT INFORMATION
  Report Type: Spontaneous
  Country: RU (occurrence: RU)
  Receive Date: 20130621
  Receipt Date: 20130621
  Transmission Date: 20140414
  Serious: Yes (Death, Hospitalization, Other)
  Sender: FDA-Public Use
  Company Number: RU-ROCHE-1238935

PATIENT
  Age: 62 Year
  Sex: Female

DRUGS (5)
  1. XELODA [Suspect]
     Indication: COLON CANCER
     Dosage: 1-14 DAYS EVERY 3 WEEKS
     Route: 048
     Dates: start: 200702
  2. XELODA [Suspect]
     Dosage: 1-14 DAYS EVERY 3 WEEKS
     Route: 048
  3. AVASTIN [Suspect]
     Indication: COLON CANCER
     Route: 041
     Dates: start: 200612, end: 200704
  4. AVASTIN [Suspect]
     Route: 041
     Dates: start: 200708, end: 200711
  5. AVASTIN [Suspect]
     Route: 041
     Dates: start: 200804

REACTIONS (4)
  - Death [Fatal]
  - Pneumonia [Unknown]
  - Disease progression [Not Recovered/Not Resolved]
  - Thrombocytopenia [Unknown]
